FAERS Safety Report 7559487-8 (Version None)
Quarter: 2011Q2

REPORT INFORMATION
  Report Type: 
  Country: None (occurrence: None)
  Receive Date: 20110621
  Receipt Date: 20110610
  Transmission Date: 20111010
  Serious: Yes (Hospitalization)
  Sender: FDA-Public Use
  Company Number: SG-NOVOPROD-326921

PATIENT
  Age: 27 Year
  Sex: Male
  Weight: 100 kg

DRUGS (4)
  1. VICTOZA [Suspect]
     Indication: TYPE 2 DIABETES MELLITUS
     Dosage: 0.6 MG, QD FOR ONE WEEK
     Dates: start: 20101228, end: 20110201
  2. VICTOZA [Suspect]
     Indication: OBESITY
     Dosage: 1.2 MG, QD FOR 2A? MONTHS
  3. JANUVIA [Concomitant]
     Dosage: 100 MG, ONCE IN THE MORNING
  4. METFORMIN HCL [Concomitant]
     Dosage: 850 MG, BID

REACTIONS (1)
  - COLON CANCER STAGE III [None]
